FAERS Safety Report 23171244 (Version 1)
Quarter: 2023Q4

REPORT INFORMATION
  Report Type: Spontaneous
  Country: CN (occurrence: CN)
  Receive Date: 20231110
  Receipt Date: 20231110
  Transmission Date: 20240110
  Serious: Yes (Other)
  Sender: FDA-Public Use
  Company Number: CN-009507513-2311CHN001685

PATIENT
  Age: 49 Year
  Sex: Female
  Weight: 55 kg

DRUGS (5)
  1. CILASTATIN SODIUM\IMIPENEM [Suspect]
     Active Substance: CILASTATIN SODIUM\IMIPENEM
     Indication: Pelvic infection
     Dosage: 2 GRAM, Q8H
     Route: 041
     Dates: start: 20230607, end: 20230608
  2. CILASTATIN SODIUM\IMIPENEM [Suspect]
     Active Substance: CILASTATIN SODIUM\IMIPENEM
     Dosage: 1 GRAM, Q12H (FORMULATION ALSO REPORTED AS LYOPHILIZED POWDER)
     Route: 041
     Dates: start: 20230608, end: 20230609
  3. SODIUM CHLORIDE [Concomitant]
     Active Substance: SODIUM CHLORIDE
     Indication: Medication dilution
     Dosage: 100 MILLILITER, Q8H
     Route: 041
     Dates: start: 20230607, end: 20230608
  4. SODIUM CHLORIDE [Concomitant]
     Active Substance: SODIUM CHLORIDE
     Dosage: 100 MILLILITER, Q12H
     Route: 041
     Dates: start: 20230608, end: 20230609
  5. VANCOMYCIN [Concomitant]
     Active Substance: VANCOMYCIN
     Dosage: UNK
     Dates: start: 2023, end: 202306

REACTIONS (7)
  - Drug eruption [Recovered/Resolved]
  - Overdose [Unknown]
  - Incorrect dosage administered [Unknown]
  - Product preparation issue [Unknown]
  - Product preparation issue [Unknown]
  - Product use issue [Unknown]
  - Product use issue [Unknown]

NARRATIVE: CASE EVENT DATE: 20230607
